FAERS Safety Report 7349778-8 (Version None)
Quarter: 2011Q1

REPORT INFORMATION
  Report Type: 
  Country: None (occurrence: None)
  Receive Date: 20110309
  Receipt Date: 20110309
  Transmission Date: 20110831
  Serious: Yes (Hospitalization)
  Sender: FDA-Public Use
  Company Number: None

PATIENT
  Sex: Female
  Weight: 66.6 kg

DRUGS (6)
  1. DOXORUBICIN HYDROCHLORIDE [Suspect]
     Dosage: 412 MG
     Dates: end: 20100518
  2. CYCLOPHOSPHAMIDE [Suspect]
     Dosage: 4120 MG
     Dates: end: 20100518
  3. ZOMIG INHALER [Concomitant]
  4. HEPARIN [Concomitant]
  5. NEULASTA [Suspect]
     Dosage: 24 MG
     Dates: end: 20100519
  6. RELPAX [Concomitant]

REACTIONS (5)
  - LOCAL SWELLING [None]
  - THROMBOSIS [None]
  - INTRA-ABDOMINAL HAEMORRHAGE [None]
  - HEPATIC LESION [None]
  - BIOPSY LIVER ABNORMAL [None]
